FAERS Safety Report 22723422 (Version 4)
Quarter: 2024Q1

REPORT INFORMATION
  Report Type: Report from Study
  Country: US (occurrence: US)
  Receive Date: 20230719
  Receipt Date: 20240222
  Transmission Date: 20240410
  Serious: Yes (Other)
  Sender: FDA-Public Use
  Company Number: US-002147023-NVSC2023US156581

PATIENT
  Sex: Female

DRUGS (1)
  1. TABRECTA [Suspect]
     Active Substance: CAPMATINIB
     Indication: Lung neoplasm malignant
     Dosage: 400 MG, BID
     Route: 048

REACTIONS (5)
  - Dementia [Unknown]
  - Ecchymosis [Not Recovered/Not Resolved]
  - Contusion [Unknown]
  - Nausea [Recovering/Resolving]
  - Product distribution issue [Not Recovered/Not Resolved]
